FAERS Safety Report 14038233 (Version 1)
Quarter: 2017Q4

REPORT INFORMATION
  Report Type: Spontaneous
  Country: US (occurrence: US)
  Receive Date: 20171004
  Receipt Date: 20171004
  Transmission Date: 20180321
  Serious: No
  Sender: FDA-Public Use
  Company Number: US-GALDERMA-US17000026

PATIENT
  Age: 21 Year
  Sex: Male

DRUGS (5)
  1. CLEARASIL CLEANSING GEL [Concomitant]
     Route: 061
     Dates: start: 201612
  2. MIRVASO [Suspect]
     Active Substance: BRIMONIDINE TARTRATE
     Indication: ERYTHEMA
     Route: 061
     Dates: start: 20161223, end: 20161223
  3. UNSPECIFIED LOTION FOR SENSITIVE SKIN [Concomitant]
     Indication: THERAPEUTIC SKIN CARE TOPICAL
     Route: 061
  4. MIRVASO [Suspect]
     Active Substance: BRIMONIDINE TARTRATE
     Route: 061
     Dates: start: 20161226, end: 20161226
  5. UNSPECIFIED COLLAGEN CREAM FOR SENSITIVE SKIN [Concomitant]
     Route: 061

REACTIONS (6)
  - Erythema [Not Recovered/Not Resolved]
  - Intentional product misuse [Recovered/Resolved]
  - Intentional overdose [Recovered/Resolved]
  - Flushing [Not Recovered/Not Resolved]
  - Expired product administered [Recovered/Resolved]
  - Rebound effect [Not Recovered/Not Resolved]

NARRATIVE: CASE EVENT DATE: 20161223
